FAERS Safety Report 5127977-3 (Version None)
Quarter: 2006Q4

REPORT INFORMATION
  Report Type: 
  Country: None (occurrence: None)
  Receive Date: 20061016
  Receipt Date: 20060915
  Transmission Date: 20070319
  Serious: Yes (Life-Threatening, Hospitalization)
  Sender: FDA-Public Use
  Company Number: FR-AMGEN-UK193798

PATIENT
  Age: 51 Year
  Sex: Male
  Weight: 60 kg

DRUGS (6)
  1. NEULASTA [Suspect]
     Indication: CHEMOTHERAPY
     Route: 058
     Dates: start: 20060727, end: 20060727
  2. CISPLATIN [Concomitant]
     Route: 042
     Dates: start: 20060201
  3. GEMZAR [Concomitant]
     Route: 065
     Dates: start: 20060201
  4. DOXORUBICIN HYDROCHLORIDE [Concomitant]
     Route: 042
     Dates: start: 20060628
  5. METHOTREXATE [Concomitant]
     Route: 042
     Dates: start: 20060628
  6. VELBE [Concomitant]
     Route: 042
     Dates: start: 20060628

REACTIONS (2)
  - DRUG INEFFECTIVE [None]
  - FEBRILE NEUTROPENIA [None]
